FAERS Safety Report 4441546-X (Version None)
Quarter: 2004Q3

REPORT INFORMATION
  Report Type: 
  Country: None (occurrence: None)
  Receive Date: 20040728
  Receipt Date: 20040316
  Transmission Date: 20050211
  Serious: No
  Sender: FDA-Public Use
  Company Number: US_0403101244

PATIENT
  Age: 14 Year
  Sex: Male
  Weight: 101 kg

DRUGS (1)
  1. STRATTERA [Suspect]
     Indication: ATTENTION DEFICIT/HYPERACTIVITY DISORDER
     Dosage: 100 MG DAY
     Dates: start: 20030328

REACTIONS (3)
  - AGITATION [None]
  - BLOOD CHOLESTEROL INCREASED [None]
  - HYPERTENSION [None]
